FAERS Safety Report 9542421 (Version 1)
Quarter: 2013Q3

REPORT INFORMATION
  Report Type: Spontaneous
  Country: IN (occurrence: IN)
  Receive Date: 20130923
  Receipt Date: 20130923
  Transmission Date: 20140515
  Serious: Yes (Hospitalization, Other)
  Sender: FDA-Public Use
  Company Number: IN-PFIZER INC-2013268292

PATIENT
  Age: 65 Year
  Sex: Male

DRUGS (4)
  1. FLUOROURACIL [Suspect]
     Indication: OESOPHAGEAL ADENOCARCINOMA
     Dosage: CYCLIC
     Route: 040
  2. ENALAPRIL [Concomitant]
     Indication: HYPERTENSION
     Dosage: 10 MG, UNK
  3. CISPLATIN [Concomitant]
     Indication: OESOPHAGEAL ADENOCARCINOMA
  4. LEUCOVORIN CALCIUM [Concomitant]
     Indication: OESOPHAGEAL ADENOCARCINOMA

REACTIONS (1)
  - Arteriospasm coronary [Recovered/Resolved]
